FAERS Safety Report 10060638 (Version 1)
Quarter: 2014Q2

REPORT INFORMATION
  Report Type: Spontaneous
  Country: US (occurrence: US)
  Receive Date: 20140404
  Receipt Date: 20140404
  Transmission Date: 20141212
  Serious: Yes (Other)
  Sender: FDA-Public Use
  Company Number: US-FRI-1000066068

PATIENT
  Sex: Female

DRUGS (7)
  1. LINZESS [Suspect]
     Indication: IRRITABLE BOWEL SYNDROME
     Dosage: 145MCG
     Route: 048
     Dates: start: 201403
  2. NEXIUM [Concomitant]
     Indication: GASTROOESOPHAGEAL REFLUX DISEASE
  3. SUCRALFATE [Concomitant]
     Dosage: 3 GM
  4. MONTELUKAST [Concomitant]
     Indication: SEASONAL ALLERGY
     Dosage: 10MG (FREQUENCY UNKNOWN)
  5. LEVOCETIRIZINE [Concomitant]
     Indication: SEASONAL ALLERGY
     Dosage: 5MG (FREQUENCY UNKNOWN)
  6. INHALER (NOS) [Concomitant]
     Indication: ASTHMA
     Dosage: AS NEEDED
  7. FLUOXETINE [Concomitant]
     Indication: DEPRESSION
     Dosage: 20MG

REACTIONS (6)
  - Pyrexia [Not Recovered/Not Resolved]
  - Diarrhoea [Not Recovered/Not Resolved]
  - Faeces discoloured [Not Recovered/Not Resolved]
  - Anal inflammation [Not Recovered/Not Resolved]
  - Anorectal discomfort [Not Recovered/Not Resolved]
  - Gastrointestinal sounds abnormal [Not Recovered/Not Resolved]
